FAERS Safety Report 8047605-7 (Version None)
Quarter: 2012Q1

REPORT INFORMATION
  Report Type: 
  Country: None (occurrence: None)
  Receive Date: 20120116
  Receipt Date: 20120112
  Transmission Date: 20120608
  Serious: Yes (Other)
  Sender: FDA-Public Use
  Company Number: US-GLAXOSMITHKLINE-B0727143A

PATIENT
  Age: 66 Year
  Sex: Male
  Weight: 81.8 kg

DRUGS (4)
  1. AVANDIA [Suspect]
     Indication: DIABETES MELLITUS
     Dosage: 8MG PER DAY
     Route: 048
     Dates: start: 20050101, end: 20070808
  2. LIPITOR [Concomitant]
  3. TRICOR [Concomitant]
  4. GLUCOVANCE [Concomitant]

REACTIONS (3)
  - TRANSIENT ISCHAEMIC ATTACK [None]
  - PNEUMONIA [None]
  - MENTAL STATUS CHANGES [None]
